FAERS Safety Report 10369096 (Version 1)
Quarter: 2014Q3

REPORT INFORMATION
  Report Type: Spontaneous
  Country: IT (occurrence: IT)
  Receive Date: 20140807
  Receipt Date: 20140807
  Transmission Date: 20150326
  Serious: Yes (Other)
  Sender: FDA-Public Use
  Company Number: PHHY2014IT095800

PATIENT
  Age: 58 Year
  Sex: Female

DRUGS (3)
  1. PAROXETINE [Suspect]
     Active Substance: PAROXETINE\PAROXETINE HYDROCHLORIDE
     Indication: AFFECTIVE DISORDER
     Dosage: 20 MG, PER DAY
     Route: 048
     Dates: start: 2006, end: 2008
  2. PAROXETINE [Suspect]
     Active Substance: PAROXETINE\PAROXETINE HYDROCHLORIDE
     Indication: MAJOR DEPRESSION
  3. PAROXETINE [Suspect]
     Active Substance: PAROXETINE\PAROXETINE HYDROCHLORIDE
     Indication: SOMATISATION DISORDER

REACTIONS (7)
  - Hypochondriasis [Unknown]
  - Major depression [Unknown]
  - Tension [Unknown]
  - Somatisation disorder [Unknown]
  - Anxiety [Unknown]
  - Depressed mood [Unknown]
  - Condition aggravated [Unknown]
